FAERS Safety Report 9844007 (Version 1)
Quarter: 2013Q4

REPORT INFORMATION
  Report Type: Spontaneous
  Country: US (occurrence: None)
  Receive Date: 20131223
  Receipt Date: 20131223
  Transmission Date: 20140711
  Serious: No
  Sender: FDA-Public Use
  Company Number: 1000048427

PATIENT
  Age: 75 Year
  Sex: Female
  Weight: 41 kg

DRUGS (1)
  1. LINZESS (LINACLOTIDE) (145 MICROGRAM, CAPSULES) [Suspect]

REACTIONS (2)
  - Diarrhoea [None]
  - Faecal incontinence [None]
